FAERS Safety Report 12781283 (Version 7)
Quarter: 2016Q4

REPORT INFORMATION
  Report Type: Report from Study
  Country: KR (occurrence: KR)
  Receive Date: 20160926
  Receipt Date: 20161213
  Transmission Date: 20170207
  Serious: Yes (Hospitalization)
  Sender: FDA-Public Use
  Company Number: DE-ACTELION-A-US2016-142874

PATIENT
  Age: 57 Year
  Sex: Female

DRUGS (1)
  1. VENTAVIS [Suspect]
     Active Substance: ILOPROST
     Indication: PULMONARY ARTERIAL HYPERTENSION
     Dosage: UNK, 6ID
     Route: 055
     Dates: start: 20160706

REACTIONS (24)
  - Head injury [Not Recovered/Not Resolved]
  - Ocular hyperaemia [Not Recovered/Not Resolved]
  - Weight decreased [Not Recovered/Not Resolved]
  - Nasopharyngitis [Not Recovered/Not Resolved]
  - Cough [Not Recovered/Not Resolved]
  - Pulmonary oedema [Recovering/Resolving]
  - Fall [Not Recovered/Not Resolved]
  - Coagulation time prolonged [Unknown]
  - Nausea [Recovered/Resolved]
  - Intentional product misuse [Unknown]
  - Pyrexia [Recovered/Resolved]
  - Arthralgia [Recovered/Resolved]
  - Abdominal pain [Recovered/Resolved]
  - Epistaxis [Recovered/Resolved]
  - Productive cough [Unknown]
  - Dizziness [Not Recovered/Not Resolved]
  - Enteritis [Recovered/Resolved]
  - Headache [Recovered/Resolved]
  - Product use issue [Not Recovered/Not Resolved]
  - Cerebral haemorrhage [Recovered/Resolved]
  - Loss of consciousness [Not Recovered/Not Resolved]
  - Asthenia [Unknown]
  - Dyspnoea [Recovering/Resolving]
  - Product use issue [Recovered/Resolved]

NARRATIVE: CASE EVENT DATE: 2016
